FAERS Safety Report 19780015 (Version 3)
Quarter: 2021Q4

REPORT INFORMATION
  Report Type: Spontaneous
  Country: US (occurrence: US)
  Receive Date: 20210902
  Receipt Date: 20211006
  Transmission Date: 20220303
  Serious: Yes (Hospitalization)
  Sender: FDA-Public Use
  Company Number: US-ADC THERAPEUTICS-ADC-2021-000122

PATIENT
  Age: 63 Year
  Sex: Female

DRUGS (6)
  1. ZYNLONTA [Suspect]
     Active Substance: LONCASTUXIMAB TESIRINE-LPYL
     Indication: Lymphoma
     Dosage: UNK
     Route: 037
     Dates: start: 20210720
  2. CYTARABINE [Concomitant]
     Active Substance: CYTARABINE
     Indication: Lymphoma
     Dosage: UNK, 2 TIMES/WK
     Route: 037
     Dates: start: 20210713
  3. CYTARABINE [Concomitant]
     Active Substance: CYTARABINE
     Dosage: UNK, QWK
     Route: 037
     Dates: start: 20210719
  4. HYDROCORTISONE [Concomitant]
     Active Substance: HYDROCORTISONE
     Indication: Lymphoma
     Dosage: UNK, 2 TIMES/WK
     Route: 037
     Dates: start: 20210713
  5. HYDROCORTISONE [Concomitant]
     Active Substance: HYDROCORTISONE
     Dosage: UNK, QWK
     Route: 037
     Dates: start: 20210719
  6. METHOTREXATE [Concomitant]
     Active Substance: METHOTREXATE
     Indication: Lymphoma
     Dosage: UNK
     Dates: start: 20210726

REACTIONS (2)
  - Radiculopathy [Unknown]
  - Rash [Recovering/Resolving]

NARRATIVE: CASE EVENT DATE: 20210911
